FAERS Safety Report 10340507 (Version 1)
Quarter: 2014Q3

REPORT INFORMATION
  Report Type: Spontaneous
  Country: US (occurrence: US)
  Receive Date: 20140724
  Receipt Date: 20140724
  Transmission Date: 20150326
  Serious: Yes (Other)
  Sender: FDA-Public Use
  Company Number: PHEH2014US014543

PATIENT
  Sex: Female

DRUGS (10)
  1. ADVIL [Suspect]
     Active Substance: IBUPROFEN
     Dosage: UNK UKN, UNK
  2. FISH OIL [Concomitant]
     Active Substance: FISH OIL
     Dosage: UNK UKN, UNK
  3. CENTRUM SILVER [Concomitant]
     Active Substance: VITAMINS
     Dosage: UNK UKN, UNK
  4. LISINOPRIL. [Concomitant]
     Active Substance: LISINOPRIL
     Dosage: UNK UKN, UNK
  5. RELAFEN [Suspect]
     Active Substance: NABUMETONE
     Dosage: UNK UKN, UNK
  6. METIPRANOLOL. [Concomitant]
     Active Substance: METIPRANOLOL
     Dosage: UNK UKN, UNK
  7. TYLENOL [Suspect]
     Active Substance: ACETAMINOPHEN
     Dosage: UNK UKN, UNK
  8. BABY ASPIRIN [Concomitant]
     Active Substance: ASPIRIN
     Dosage: UNK UKN, UNK
  9. CELEBREX [Concomitant]
     Active Substance: CELECOXIB
     Dosage: UNK UKN, UNK
     Dates: start: 2000
  10. ESTRADIOL. [Suspect]
     Active Substance: ESTRADIOL
     Dosage: UNK UKN, UNK
     Route: 062
     Dates: start: 201101, end: 201104

REACTIONS (7)
  - Blood pressure abnormal [Unknown]
  - Osteoarthritis [Unknown]
  - Application site irritation [Unknown]
  - Drug ineffective [Unknown]
  - Application site rash [Unknown]
  - Arthritis [Unknown]
  - Glaucoma [Unknown]
